FAERS Safety Report 19693604 (Version 2)
Quarter: 2021Q3

REPORT INFORMATION
  Report Type: Spontaneous
  Country: CA (occurrence: CA)
  Receive Date: 20210812
  Receipt Date: 20210817
  Transmission Date: 20211014
  Serious: Yes (Death, Other)
  Sender: FDA-Public Use
  Company Number: CA-TEVA-2021-CA-1940282

PATIENT
  Age: 67 Year
  Sex: Male

DRUGS (6)
  1. LUTETIUM (177LU) PSMA?617 [Suspect]
     Active Substance: LUTETIUM LU-177 VIPIVOTIDE TETRAXETAN
     Indication: HORMONE-REFRACTORY PROSTATE CANCER
     Dosage: 177LU?PSMA617
     Route: 065
     Dates: start: 201705
  2. PERINDOPRIL [Suspect]
     Active Substance: PERINDOPRIL
     Indication: HYPERTENSION
     Route: 065
  3. ACTINIUM (225AC) PSMA?617 [Suspect]
     Active Substance: VIPIVOTIDE TETRAXETAN ACTINIUM AC-225
     Indication: PROSTATE CANCER METASTATIC
  4. AMLODIPINE [Suspect]
     Active Substance: AMLODIPINE BESYLATE
     Indication: HYPERTENSION
     Route: 065
  5. ACTINIUM (225AC) PSMA?617 [Suspect]
     Active Substance: VIPIVOTIDE TETRAXETAN ACTINIUM AC-225
     Indication: HORMONE-REFRACTORY PROSTATE CANCER
     Dosage: 5 CYCLES IN 2 MONTHS INTERVAL?225AC?PSMA617
     Route: 065
     Dates: start: 201804
  6. LUTETIUM (177LU) PSMA?617 [Suspect]
     Active Substance: LUTETIUM LU-177 VIPIVOTIDE TETRAXETAN
     Indication: PROSTATE CANCER METASTATIC

REACTIONS (2)
  - Cytopenia [Unknown]
  - Chronic kidney disease [Unknown]

NARRATIVE: CASE EVENT DATE: 2018
